FAERS Safety Report 7843555-7 (Version None)
Quarter: 2011Q4

REPORT INFORMATION
  Report Type: 
  Country: None (occurrence: None)
  Receive Date: 20111014
  Receipt Date: 20111004
  Transmission Date: 20120403
  Serious: Yes (Death, Hospitalization)
  Sender: FDA-Public Use
  Company Number: CLOF-1000096

PATIENT
  Age: 73 Year
  Sex: Male

DRUGS (2)
  1. DAUNORUBICIN HCL [Suspect]
     Indication: MYELOID LEUKAEMIA
     Dates: start: 20071218, end: 20071222
  2. EVOLRE (CLOFARABINE) SOLUTION FOR INFUSION [Suspect]
     Indication: MYELOID LEUKAEMIA
     Dosage: INTRAVENOUS

REACTIONS (3)
  - ASPERGILLOSIS [None]
  - PULMONARY MASS [None]
  - PULMONARY HAEMORRHAGE [None]
